FAERS Safety Report 14768253 (Version 2)
Quarter: 2018Q2

REPORT INFORMATION
  Report Type: Spontaneous
  Country: IT (occurrence: IT)
  Receive Date: 20180417
  Receipt Date: 20180630
  Transmission Date: 20180711
  Serious: Yes (Other)
  Sender: FDA-Public Use
  Company Number: IT-TEVA-2018-IT-880809

PATIENT
  Age: 66 Year
  Sex: Female

DRUGS (3)
  1. LEVOFLOXACIN. [Suspect]
     Active Substance: LEVOFLOXACIN
     Indication: BRONCHITIS
     Route: 042
     Dates: start: 20180105, end: 20180105
  2. TACHIPIRINA [Concomitant]
     Active Substance: ACETAMINOPHEN
     Route: 065
  3. OKI 80 MG GRANULATO PER SOLUZIONE ORALE [Concomitant]
     Active Substance: KETOPROFEN LYSINE

REACTIONS (4)
  - Presyncope [Recovering/Resolving]
  - Hyperhidrosis [Recovering/Resolving]
  - Vomiting [Recovering/Resolving]
  - Hypotension [Recovering/Resolving]

NARRATIVE: CASE EVENT DATE: 20180105
